FAERS Safety Report 5008951-4 (Version None)
Quarter: 2006Q2

REPORT INFORMATION
  Report Type: 
  Country: None (occurrence: None)
  Receive Date: 20060518
  Receipt Date: 20060508
  Transmission Date: 20061013
  Serious: Yes (Hospitalization)
  Sender: FDA-Public Use
  Company Number: 2006P1000270

PATIENT
  Age: 59 Year
  Sex: Male
  Weight: 85 kg

DRUGS (4)
  1. RETEPLASE (RETEPLASE) [Suspect]
     Indication: ACUTE MYOCARDIAL INFARCTION
     Dosage: 5.0 IU;X1;IVB
     Route: 040
     Dates: start: 20060117, end: 20060117
  2. REOPRO [Suspect]
     Indication: ACUTE MYOCARDIAL INFARCTION
     Dosage: 10.6 IU;Z1;IVB; 4 ML; QH;IV
     Dates: start: 20060117, end: 20060117
  3. REOPRO [Suspect]
     Indication: ACUTE MYOCARDIAL INFARCTION
     Dosage: 10.6 IU;Z1;IVB; 4 ML; QH;IV
     Dates: start: 20060117, end: 20060117
  4. HEPARIN [Concomitant]

REACTIONS (2)
  - CARDIAC FAILURE [None]
  - CORONARY ARTERY STENOSIS [None]
